FAERS Safety Report 5989394-3 (Version None)
Quarter: 2008Q4

REPORT INFORMATION
  Report Type: 
  Country: None (occurrence: None)
  Receive Date: 20081210
  Receipt Date: 20081201
  Transmission Date: 20090506
  Serious: Yes (Other)
  Sender: FDA-Public Use
  Company Number: NL-ROCHE-600492

PATIENT

DRUGS (3)
  1. CAPECITABINE [Suspect]
     Indication: GASTRIC CANCER
     Route: 065
     Dates: start: 20081016
  2. CISPLATIN [Suspect]
     Indication: GASTRIC CANCER
     Route: 065
     Dates: start: 20081016
  3. EPIRUBICIN [Suspect]
     Indication: GASTRIC CANCER
     Route: 065
     Dates: start: 20081016

REACTIONS (1)
  - EXTRAVASATION [None]
